FAERS Safety Report 18227917 (Version 1)
Quarter: 2020Q3

REPORT INFORMATION
  Report Type: Spontaneous
  Country: US (occurrence: US)
  Receive Date: 20200903
  Receipt Date: 20200903
  Transmission Date: 20201103
  Serious: Yes (Other)
  Sender: FDA-Public Use
  Company Number: None

PATIENT
  Age: 51 Year
  Sex: Female
  Weight: 78.75 kg

DRUGS (5)
  1. NATURE^S PLUS MULTIVITAMIN [Concomitant]
  2. VANIPLY [Suspect]
     Active Substance: DIMETHICONE
     Indication: THERAPEUTIC PROCEDURE
     Dosage: ?          OTHER FREQUENCY:APPLIED ONCE;?
     Route: 061
     Dates: start: 20200828, end: 20200828
  3. HCTZ [Concomitant]
     Active Substance: HYDROCHLOROTHIAZIDE
  4. ATENOLOL. [Concomitant]
     Active Substance: ATENOLOL
  5. MINERAL SUPPLEMENT WITH IRON [Concomitant]

REACTIONS (2)
  - Application site rash [None]
  - Hypersensitivity [None]

NARRATIVE: CASE EVENT DATE: 20200828
